FAERS Safety Report 5065467-7 (Version None)
Quarter: 2006Q3

REPORT INFORMATION
  Report Type: 
  Country: None (occurrence: None)
  Receive Date: 20060725
  Receipt Date: 20060718
  Transmission Date: 20061208
  Serious: Yes (Other)
  Sender: FDA-Public Use
  Company Number: 2006074265

PATIENT
  Age: 60 Year
  Sex: Male
  Weight: 91 kg

DRUGS (6)
  1. ATORVASTATIN CALCIUM [Suspect]
     Indication: HYPERLIPIDAEMIA
     Dosage: 40 MG (40 MG, 1 IN 1 D), ORAL
     Route: 048
     Dates: start: 20060425
  2. AVANDIA [Suspect]
     Indication: DIABETES MELLITUS NON-INSULIN-DEPENDENT
     Dosage: 4 MG (4 MG 1 IN 1 D)
     Dates: start: 20060425
  3. ASPIRIN [Concomitant]
  4. ACE INHIBITOR NOS (ACE INHIBITOR NOS) [Concomitant]
  5. ATACAND [Concomitant]
  6. ASPIRIN CARDIO (ACETLYSALICYLIC ACID) [Concomitant]

REACTIONS (4)
  - BILIRUBINURIA [None]
  - GAMMA-GLUTAMYLTRANSFERASE INCREASED [None]
  - UROBILIN URINE [None]
  - VENOUS THROMBOSIS [None]
